FAERS Safety Report 15503027 (Version 1)
Quarter: 2018Q4

REPORT INFORMATION
  Report Type: Spontaneous
  Country: US (occurrence: US)
  Receive Date: 20181008
  Receipt Date: 20181008
  Transmission Date: 20190205
  Serious: Yes (Other)
  Sender: FDA-Public Use
  Company Number: None

PATIENT
  Age: 65 Year
  Sex: Female
  Weight: 56.25 kg

DRUGS (22)
  1. SENNA [Concomitant]
     Active Substance: SENNA LEAF\SENNOSIDES\SENNOSIDES A AND B
  2. VITAMIN D3 [Concomitant]
     Active Substance: CHOLECALCIFEROL
  3. SYNTHROID [Concomitant]
     Active Substance: LEVOTHYROXINE SODIUM
  4. CLIMARA [Concomitant]
     Active Substance: ESTRADIOL
  5. KEFLEX [Concomitant]
     Active Substance: CEPHALEXIN
  6. RECLAST [Concomitant]
     Active Substance: ZOLEDRONIC ACID
  7. MAXALT [Concomitant]
     Active Substance: RIZATRIPTAN BENZOATE
  8. PEPCID [Concomitant]
     Active Substance: FAMOTIDINE
  9. RESTASIS [Concomitant]
     Active Substance: CYCLOSPORINE
  10. ADDERALL [Concomitant]
     Active Substance: AMPHETAMINE ASPARTATE\AMPHETAMINE SULFATE\DEXTROAMPHETAMINE SACCHARATE\DEXTROAMPHETAMINE SULFATE
  11. AMOXICILLIN. [Concomitant]
     Active Substance: AMOXICILLIN
  12. CYTOTEC [Concomitant]
     Active Substance: MISOPROSTOL
  13. OXYCONTIN [Concomitant]
     Active Substance: OXYCODONE HYDROCHLORIDE
  14. ZOFRAN [Concomitant]
     Active Substance: ONDANSETRON HYDROCHLORIDE
  15. LINZESS [Concomitant]
     Active Substance: LINACLOTIDE
  16. PRISTIQ EXTENDED-RELEASE [Concomitant]
     Active Substance: DESVENLAFAXINE SUCCINATE
  17. WELLBUTRIN [Concomitant]
     Active Substance: BUPROPION HYDROCHLORIDE
  18. CAPECITABINE. [Suspect]
     Active Substance: CAPECITABINE
     Indication: PANCREATIC CARCINOMA
     Route: 048
     Dates: start: 20180504
  19. FML LIQUIFLIM [Concomitant]
  20. CAPECITABINE. [Suspect]
     Active Substance: CAPECITABINE
     Indication: PANCREATIC CARCINOMA
     Route: 048
     Dates: start: 20180504
  21. KLONOPIN [Concomitant]
     Active Substance: CLONAZEPAM
  22. PERCOCET [Concomitant]
     Active Substance: ACETAMINOPHEN\OXYCODONE HYDROCHLORIDE

REACTIONS (3)
  - Nausea [None]
  - Abdominal pain [None]
  - Constipation [None]

NARRATIVE: CASE EVENT DATE: 20181008
